FAERS Safety Report 8312968-1 (Version None)
Quarter: 2012Q2

REPORT INFORMATION
  Report Type: 
  Country: None (occurrence: None)
  Receive Date: 20120426
  Receipt Date: 20120412
  Transmission Date: 20120825
  Serious: Yes (Other)
  Sender: FDA-Public Use
  Company Number: JP-VERTEX PHARMACEUTICALS INC.-AE-2012-005592

PATIENT
  Age: 66 Year
  Sex: Female

DRUGS (3)
  1. PEGINTERFERON ALFA-2B [Concomitant]
     Route: 051
     Dates: start: 20120329
  2. RIBAVIRIN [Concomitant]
     Route: 048
     Dates: start: 20120329
  3. TELAVIC (TELAPREVIR) [Suspect]
     Route: 048
     Dates: start: 20120329, end: 20120411

REACTIONS (1)
  - DECREASED APPETITE [None]
